FAERS Safety Report 20104472 (Version 6)
Quarter: 2022Q1

REPORT INFORMATION
  Report Type: Report from Study
  Country: CN (occurrence: CN)
  Receive Date: 20211123
  Receipt Date: 20220330
  Transmission Date: 20220423
  Serious: Yes (Life-Threatening)
  Sender: FDA-Public Use
  Company Number: CN-ABBVIE-21P-035-4169473-00

PATIENT
  Age: 54 Year
  Sex: Male
  Weight: 57 kg

DRUGS (2)
  1. VENETOCLAX [Suspect]
     Active Substance: VENETOCLAX
     Indication: Myelodysplastic syndrome
     Dosage: DAYS 1 THROUGH 14 OF EACH CYCLE
     Route: 048
     Dates: start: 20211103
  2. AZACITIDINE [Suspect]
     Active Substance: AZACITIDINE
     Indication: Myelodysplastic syndrome
     Dosage: ON 7 DAYS WITHIN THE FIRST 9 CALENDAR DAYS PER 28-DAY CYCLE
     Route: 058
     Dates: start: 20211103

REACTIONS (1)
  - Gastrointestinal infection [Recovered/Resolved]

NARRATIVE: CASE EVENT DATE: 20211114
